APPROVED DRUG PRODUCT: CARISOPRODOL
Active Ingredient: CARISOPRODOL
Strength: 350MG
Dosage Form/Route: TABLET;ORAL
Application: A040576 | Product #001 | TE Code: AA
Applicant: ACCELRX LABS LLC
Approved: Jun 7, 2005 | RLD: No | RS: No | Type: RX